FAERS Safety Report 7413489-0 (Version None)
Quarter: 2011Q2

REPORT INFORMATION
  Report Type: 
  Country: None (occurrence: None)
  Receive Date: 20110413
  Receipt Date: 20110407
  Transmission Date: 20111010
  Serious: Yes (Other)
  Sender: FDA-Public Use
  Company Number: PHHY2011GR28619

PATIENT
  Age: 44 Year
  Sex: Male

DRUGS (1)
  1. EXTAVIA [Suspect]
     Route: 058

REACTIONS (2)
  - DYSPHAGIA [None]
  - RESPIRATORY TRACT INFECTION [None]
